FAERS Safety Report 9092937 (Version 1)
Quarter: 2013Q1

REPORT INFORMATION
  Report Type: Spontaneous
  Country: US (occurrence: US)
  Receive Date: 20130131
  Receipt Date: 20130131
  Transmission Date: 20140127
  Serious: No
  Sender: FDA-Public Use
  Company Number: US-PFIZER INC-2013029981

PATIENT
  Sex: Male

DRUGS (3)
  1. CYTOMEL [Suspect]
  2. SYNTHROID [Suspect]
     Dosage: UNK
     Dates: start: 2009, end: 2009
  3. SYNTHROID [Suspect]
     Dosage: UNK
     Dates: start: 201212, end: 201212

REACTIONS (3)
  - Blood pressure increased [Recovered/Resolved]
  - Wrong drug administered [Recovered/Resolved]
  - Expired drug administered [Recovered/Resolved]
